FAERS Safety Report 5704153-4 (Version None)
Quarter: 2008Q2

REPORT INFORMATION
  Report Type: 
  Country: None (occurrence: None)
  Receive Date: 20080414
  Receipt Date: 20080414
  Transmission Date: 20081010
  Serious: Yes (Death)
  Sender: FDA-Public Use
  Company Number: None

PATIENT
  Age: 85 Year
  Sex: Male
  Weight: 72.5755 kg

DRUGS (1)
  1. HEPARIN [Suspect]
     Indication: ARRHYTHMIA
     Dates: start: 20080105, end: 20080116

REACTIONS (2)
  - HAEMORRHAGE [None]
  - NONSPECIFIC REACTION [None]
